FAERS Safety Report 23623569 (Version 1)
Quarter: 2024Q1

REPORT INFORMATION
  Report Type: Spontaneous
  Country: CN (occurrence: CN)
  Receive Date: 20240312
  Receipt Date: 20240312
  Transmission Date: 20240410
  Serious: Yes (Other)
  Sender: FDA-Public Use
  Company Number: CN-PFIZER INC-PV202400032521

PATIENT
  Age: 75 Year
  Sex: Male
  Weight: 89 kg

DRUGS (2)
  1. FLUCONAZOLE [Suspect]
     Active Substance: FLUCONAZOLE
     Indication: Candida infection
     Dosage: 0.2 G, 1X/DAY
     Route: 041
     Dates: start: 20240217, end: 20240224
  2. FLUCONAZOLE [Suspect]
     Active Substance: FLUCONAZOLE
     Indication: Antifungal prophylaxis

REACTIONS (4)
  - Altered state of consciousness [Recovering/Resolving]
  - Vision blurred [Recovered/Resolved]
  - Urinary incontinence [Recovered/Resolved]
  - Disorganised speech [Not Recovered/Not Resolved]

NARRATIVE: CASE EVENT DATE: 20240224
